FAERS Safety Report 9675039 (Version 1)
Quarter: 2013Q4

REPORT INFORMATION
  Report Type: Spontaneous
  Country: US (occurrence: None)
  Receive Date: 20131106
  Receipt Date: 20131106
  Transmission Date: 20140711
  Serious: No
  Sender: FDA-Public Use
  Company Number: None

PATIENT
  Age: 74 Year
  Sex: Female
  Weight: 48.5 kg

DRUGS (6)
  1. HALAVEN [Suspect]
     Indication: CERVIX CARCINOMA
     Dates: start: 20130507, end: 20131023
  2. FERROUS SULFATE [Concomitant]
  3. FOSAMAX [Concomitant]
  4. BENAZEPRIL HCL [Concomitant]
  5. MEFORMIN [Concomitant]
  6. MULTIVITAMIN [Concomitant]

REACTIONS (2)
  - Anaemia [None]
  - Cystitis radiation [None]
